FAERS Safety Report 7987330-1 (Version None)
Quarter: 2011Q4

REPORT INFORMATION
  Report Type: 
  Country: None (occurrence: None)
  Receive Date: 20111216
  Receipt Date: 20111017
  Transmission Date: 20120403
  Serious: Yes (Other)
  Sender: FDA-Public Use
  Company Number: US-BRISTOL-MYERS SQUIBB COMPANY-16167611

PATIENT
  Age: 61 Year
  Sex: Female

DRUGS (3)
  1. VITAMIN TAB [Concomitant]
  2. IRON [Concomitant]
  3. ABILIFY [Suspect]
     Indication: DEPRESSION
     Dosage: USING 11YEARS AGO

REACTIONS (1)
  - WHITE BLOOD CELL COUNT DECREASED [None]
